FAERS Safety Report 4899093-7 (Version None)
Quarter: 2006Q1

REPORT INFORMATION
  Report Type: 
  Country: None (occurrence: None)
  Receive Date: 20060130
  Receipt Date: 20060116
  Transmission Date: 20060701
  Serious: Yes (Death, Other)
  Sender: FDA-Public Use
  Company Number: 2006009134

PATIENT
  Age: 80 Year
  Sex: Female

DRUGS (2)
  1. VFEND [Suspect]
     Indication: GASTROINTESTINAL CANDIDIASIS
  2. CORDARONE [Concomitant]

REACTIONS (2)
  - MULTI-ORGAN FAILURE [None]
  - TORSADE DE POINTES [None]
